FAERS Safety Report 17095999 (Version 1)
Quarter: 2019Q4

REPORT INFORMATION
  Report Type: Spontaneous
  Country: FR (occurrence: FR)
  Receive Date: 20191202
  Receipt Date: 20191202
  Transmission Date: 20200122
  Serious: Yes (Other)
  Sender: FDA-Public Use
  Company Number: FR-ROCHE-2478409

PATIENT
  Age: 66 Year
  Sex: Male
  Weight: 65 kg

DRUGS (11)
  1. LEVETIRACETAM MYLAN [Suspect]
     Active Substance: LEVETIRACETAM
     Indication: EPILEPSY
     Route: 048
     Dates: start: 20190718, end: 20191028
  2. VINCRISTINE HOSPIRA [Suspect]
     Active Substance: VINCRISTINE
     Indication: ANAPLASTIC ASTROCYTOMA
     Dosage: 2 MG/2 ML
     Route: 042
     Dates: start: 20190904, end: 20190925
  3. ONDANSETRON [Concomitant]
     Active Substance: ONDANSETRON
  4. PAROXETINE ARROW [Suspect]
     Active Substance: PAROXETINE
     Indication: PRODUCT USED FOR UNKNOWN INDICATION
     Route: 048
     Dates: start: 20191003, end: 20191018
  5. BELUSTINE [Suspect]
     Active Substance: LOMUSTINE
     Indication: ANAPLASTIC ASTROCYTOMA
     Route: 048
     Dates: start: 20190828
  6. NATULAN [Suspect]
     Active Substance: PROCARBAZINE HYDROCHLORIDE
     Indication: ANAPLASTIC ASTROCYTOMA
     Route: 048
     Dates: start: 20190905, end: 20190917
  7. DAFALGAN [Suspect]
     Active Substance: ACETAMINOPHEN
     Indication: HEADACHE
     Route: 048
     Dates: start: 20190928, end: 20191017
  8. PERINDOPRIL [Concomitant]
     Active Substance: PERINDOPRIL
  9. AVASTIN [Suspect]
     Active Substance: BEVACIZUMAB
     Indication: ANAPLASTIC ASTROCYTOMA
     Dosage: 25 MG/ML
     Route: 042
     Dates: start: 20191002, end: 20191024
  10. CORTANCYL [Concomitant]
     Active Substance: PREDNISONE
     Route: 065
  11. INDAPAMIDE HEMIHYDRATE [Concomitant]
     Active Substance: INDAPAMIDE HEMIHYDRATE

REACTIONS (2)
  - Hepatocellular injury [Recovering/Resolving]
  - Cholestasis [Recovering/Resolving]

NARRATIVE: CASE EVENT DATE: 20191015
